FAERS Safety Report 4843928-0 (Version None)
Quarter: 2005Q4

REPORT INFORMATION
  Report Type: 
  Country: None (occurrence: None)
  Receive Date: 20051202
  Receipt Date: 20050527
  Transmission Date: 20060501
  Serious: No
  Sender: FDA-Public Use
  Company Number: 2005065751

PATIENT
  Age: 73 Year
  Sex: Female

DRUGS (2)
  1. AUGMENTIN [Suspect]
     Indication: DRUG USE FOR UNKNOWN INDICATION
  2. BENADRYL [Suspect]
     Dosage: 1TAB PER DAY
     Route: 048
     Dates: start: 20050425

REACTIONS (3)
  - DERMATITIS ALLERGIC [None]
  - DRUG INEFFECTIVE [None]
  - SOMNOLENCE [None]
